FAERS Safety Report 20638506 (Version 1)
Quarter: 2022Q1

REPORT INFORMATION
  Report Type: Spontaneous
  Country: CA (occurrence: None)
  Receive Date: 20220325
  Receipt Date: 20220325
  Transmission Date: 20220423
  Serious: Yes (Other)
  Sender: FDA-Public Use
  Company Number: CA-FRESENIUS KABI-FK202203481

PATIENT
  Age: 2 Year
  Sex: Female

DRUGS (4)
  1. VANCOMYCIN [Suspect]
     Active Substance: VANCOMYCIN
     Indication: Urinary tract infection
     Route: 041
  2. VANCOMYCIN [Suspect]
     Active Substance: VANCOMYCIN
     Indication: Sepsis
  3. VANCOMYCIN [Suspect]
     Active Substance: VANCOMYCIN
     Indication: Pyelonephritis
  4. CEFTRIAXONE [Concomitant]
     Active Substance: CEFTRIAXONE
     Indication: Product used for unknown indication
     Route: 065

REACTIONS (6)
  - Lip swelling [Unknown]
  - Swelling face [Unknown]
  - Vomiting [Unknown]
  - Drug hypersensitivity [Unknown]
  - Hypotension [Unknown]
  - Rash [Unknown]
